FAERS Safety Report 4438574-7 (Version None)
Quarter: 2004Q3

REPORT INFORMATION
  Report Type: 
  Country: None (occurrence: None)
  Receive Date: 20040728
  Receipt Date: 20040302
  Transmission Date: 20050211
  Serious: No
  Sender: FDA-Public Use
  Company Number: USA040360731

PATIENT
  Age: 26 Year
  Sex: Male

DRUGS (1)
  1. STRATTERA [Suspect]
     Indication: ATTENTION DEFICIT/HYPERACTIVITY DISORDER
     Dosage: 40 MG/1 DAY
     Dates: start: 20040229, end: 20040302

REACTIONS (9)
  - ABDOMINAL PAIN LOWER [None]
  - DIFFICULTY IN WALKING [None]
  - DYSURIA [None]
  - GENITAL PAIN MALE [None]
  - OEDEMA GENITAL [None]
  - RASH MACULAR [None]
  - SCAB [None]
  - URINARY HESITATION [None]
  - URINE OUTPUT DECREASED [None]
